FAERS Safety Report 5826912-X (Version None)
Quarter: 2008Q3

REPORT INFORMATION
  Report Type: 
  Country: None (occurrence: None)
  Receive Date: 20080729
  Receipt Date: 20080729
  Transmission Date: 20090109
  Serious: Yes (Hospitalization)
  Sender: FDA-Public Use
  Company Number: None

PATIENT
  Age: 61 Year
  Sex: Male
  Weight: 79 kg

DRUGS (1)
  1. ZIPRASIDONE HCL [Suspect]

REACTIONS (5)
  - CHEST PAIN [None]
  - DYSPHAGIA [None]
  - ELECTROCARDIOGRAM QT PROLONGED [None]
  - MUSCLE TIGHTNESS [None]
  - SUICIDAL IDEATION [None]
